FAERS Safety Report 8336629-8 (Version None)
Quarter: 2012Q2

REPORT INFORMATION
  Report Type: 
  Country: None (occurrence: None)
  Receive Date: 20120504
  Receipt Date: 20120423
  Transmission Date: 20120825
  Serious: Yes (Death, Hospitalization, Other)
  Sender: FDA-Public Use
  Company Number: BR-AMGEN-BRASP2011035222

PATIENT
  Age: 56 Year
  Sex: Female
  Weight: 70 kg

DRUGS (6)
  1. ENBREL [Suspect]
     Indication: RHEUMATOID ARTHRITIS
     Dosage: 25 MG, 2X/WEEK
     Route: 058
     Dates: start: 20070901, end: 20110101
  2. METHOTREXATE SODIUM [Suspect]
     Dosage: 15MG/ WEEKLY
     Route: 058
     Dates: end: 20070101
  3. PREDNISONE [Concomitant]
     Dosage: 5 MG, 1X/DAY
     Route: 048
  4. ALENDRONATE SODIUM [Concomitant]
     Dosage: 70MG/ WEEKLY
     Route: 048
  5. ENBREL [Suspect]
     Dosage: 25 MG, 2X/WEEK
     Route: 058
     Dates: start: 20080101
  6. OMEPRAZOLE [Concomitant]
     Dosage: 20 MG, 1X/DAY
     Route: 048

REACTIONS (9)
  - PNEUMONIA [None]
  - PULMONARY SEPSIS [None]
  - PULMONARY EMBOLISM [None]
  - LOWER LIMB FRACTURE [None]
  - PNEUMOTHORAX [None]
  - DIABETIC COMPLICATION [None]
  - RIB FRACTURE [None]
  - SPINAL CORD INJURY [None]
  - FALL [None]
